FAERS Safety Report 7404941-2 (Version None)
Quarter: 2011Q2

REPORT INFORMATION
  Report Type: 
  Country: None (occurrence: None)
  Receive Date: 20110411
  Receipt Date: 20110330
  Transmission Date: 20111010
  Serious: Yes (Other)
  Sender: FDA-Public Use
  Company Number: ES-ELI_LILLY_AND_COMPANY-ES201103008316

PATIENT
  Sex: Male
  Weight: 77 kg

DRUGS (5)
  1. ALLOPURINOL [Concomitant]
     Indication: BLOOD URIC ACID
     Dosage: 100 MG, QD
     Route: 048
  2. OMEPRAZOLE [Concomitant]
     Indication: PROPHYLAXIS
     Dosage: 20 MG, QD
     Route: 048
  3. NATECAL [Concomitant]
     Indication: OSTEOPOROSIS
     Dosage: 1500 MG, QD
     Route: 048
  4. LEVOTHROID [Concomitant]
     Indication: HYPOTHYROIDISM
     Dosage: 62.5 MG, QD
     Route: 048
  5. FORTEO [Suspect]
     Indication: OSTEOPOROSIS
     Dosage: 20 UG, QD
     Route: 058
     Dates: start: 20110211, end: 20110313

REACTIONS (2)
  - ARRHYTHMIA [None]
  - CARDIAC VALVE DISEASE [None]
